FAERS Safety Report 4951906-6 (Version None)
Quarter: 2006Q1

REPORT INFORMATION
  Report Type: 
  Country: None (occurrence: None)
  Receive Date: 20060323
  Receipt Date: 20060315
  Transmission Date: 20060701
  Serious: Yes (Other)
  Sender: FDA-Public Use
  Company Number: 2006CG00512

PATIENT
  Age: 50 Year
  Sex: Female

DRUGS (2)
  1. ARIMIDEX [Suspect]
     Indication: BREAST CANCER
     Route: 048
     Dates: start: 20050901
  2. GARDENAL [Concomitant]
     Indication: EPILEPSY
     Route: 048

REACTIONS (1)
  - EPILEPSY [None]
